FAERS Safety Report 9613330 (Version 2)
Quarter: 2013Q3

REPORT INFORMATION
  Report Type: Spontaneous
  Country: FR (occurrence: None)
  Receive Date: 20130927
  Receipt Date: 20130930
  Transmission Date: 20140515
  Serious: Yes (Other)
  Sender: FDA-Public Use
  Company Number: 2013038040

PATIENT
  Age: 14 Year
  Sex: Male

DRUGS (3)
  1. PRIVIGEN [Suspect]
     Dosage: INFUSION RATE INCREASED FROM 30 ML/H TO 60 ML/H TO 80 ML/H AT 14:30
     Route: 042
     Dates: start: 20130720, end: 20130720
  2. CELLCEPT ( MYCOPHENOLATE MOFETIL) [Concomitant]
  3. CORTANCYL (PREDNISONE) [Concomitant]

REACTIONS (5)
  - Delirium [None]
  - Pyrexia [None]
  - Tachycardia [None]
  - Hypertension [None]
  - Capillary nail refill test abnormal [None]
